FAERS Safety Report 8144375-9 (Version None)
Quarter: 2012Q1

REPORT INFORMATION
  Report Type: 
  Country: None (occurrence: None)
  Receive Date: 20120217
  Receipt Date: 20120209
  Transmission Date: 20120608
  Serious: Yes (Hospitalization, Other)
  Sender: FDA-Public Use
  Company Number: US-US-EMD SERONO, INC.-7048259

PATIENT
  Sex: Female
  Weight: 110 kg

DRUGS (23)
  1. KEPPRA [Concomitant]
     Indication: CONVULSION
  2. NEURONTIN [Concomitant]
     Indication: CONVULSION
  3. SEROQUEL [Concomitant]
     Indication: DEPRESSION
     Dosage: AT BEDTIME
     Route: 048
  4. ZOFRAN [Concomitant]
     Indication: NAUSEA
     Dosage: ONCE EVERY FOUR HOURS
  5. COLACE [Concomitant]
     Indication: CONSTIPATION
  6. ANTIVERT [Concomitant]
     Indication: DIZZINESS
  7. NEURONTIN [Concomitant]
     Indication: NEURALGIA
  8. DEMEROL [Concomitant]
     Indication: FIBROMYALGIA
     Route: 048
  9. TEGRETOL [Concomitant]
     Indication: CONVULSION
     Route: 048
  10. BENADRYL [Concomitant]
     Indication: MIGRAINE
  11. REBIF [Suspect]
     Indication: MULTIPLE SCLEROSIS
     Route: 058
     Dates: start: 20071217
  12. DETROL LA [Concomitant]
     Indication: URINARY INCONTINENCE
     Dosage: AT BEDTIME
     Route: 048
  13. NEXIUM [Concomitant]
     Indication: GASTROOESOPHAGEAL REFLUX DISEASE
     Dosage: AT BEDTIME
     Route: 048
  14. ATARAX [Concomitant]
     Indication: ANXIETY
     Route: 048
  15. NYSTATIN [Concomitant]
     Route: 061
  16. TEGRETOL [Concomitant]
     Indication: NEURALGIA
  17. CRESTOR [Concomitant]
     Indication: BLOOD CHOLESTEROL INCREASED
     Dosage: AT BEDTIME
     Route: 048
  18. CYMBALTA [Concomitant]
     Indication: DEPRESSION
     Dosage: AT BEDTIME
     Route: 048
  19. ELAVIL [Concomitant]
     Indication: SLEEP DISORDER
     Dosage: AT BEDTIME
     Route: 048
  20. SYNTHROID [Concomitant]
     Indication: THYROID DISORDER
     Dosage: IN THE AM
     Route: 048
  21. VALIUM [Concomitant]
     Indication: ANXIETY
     Route: 048
  22. AMBIEN [Concomitant]
     Indication: SLEEP DISORDER
     Dosage: AT BEDTIME
     Route: 048
  23. COMPAZINE [Concomitant]
     Indication: MIGRAINE
     Route: 048

REACTIONS (8)
  - INJECTION SITE REACTION [None]
  - MULTIPLE SCLEROSIS RELAPSE [None]
  - SWOLLEN TONGUE [None]
  - HYPERAESTHESIA [None]
  - INFLUENZA LIKE ILLNESS [None]
  - STRESS [None]
  - BLOOD GLUCOSE INCREASED [None]
  - STAPHYLOCOCCAL INFECTION [None]
